FAERS Safety Report 6824950-1 (Version None)
Quarter: 2010Q3

REPORT INFORMATION
  Report Type: 
  Country: None (occurrence: None)
  Receive Date: 20100708
  Receipt Date: 20061208
  Transmission Date: 20110219
  Serious: No
  Sender: FDA-Public Use
  Company Number: US-PFIZER INC-2006154595

PATIENT
  Sex: Female
  Weight: 63.5 kg

DRUGS (12)
  1. CHANTIX [Suspect]
     Indication: SMOKING CESSATION THERAPY
     Dates: start: 20060101, end: 20061101
  2. BUSPIRONE [Suspect]
     Dates: start: 20060101, end: 20061101
  3. ALBUTEROL [Concomitant]
     Indication: ASTHMA
  4. ADVAIR DISKUS 100/50 [Concomitant]
     Indication: ASTHMA
  5. MONTELUKAST SODIUM [Concomitant]
     Indication: ASTHMA
  6. CELEXA [Concomitant]
  7. DOCUSATE [Concomitant]
  8. MULTI-VITAMINS [Concomitant]
  9. OXYCODONE HCL [Concomitant]
  10. XANAX [Concomitant]
  11. HYDROCODONE BITARTRATE [Concomitant]
  12. DIURETICS [Concomitant]

REACTIONS (3)
  - ASTHMA [None]
  - HEADACHE [None]
  - NAUSEA [None]
